FAERS Safety Report 24838311 (Version 1)
Quarter: 2025Q1

REPORT INFORMATION
  Report Type: Spontaneous
  Country: US (occurrence: US)
  Receive Date: 20250113
  Receipt Date: 20250113
  Transmission Date: 20250409
  Serious: No
  Sender: PFIZER
  Company Number: US-PFIZER INC-PV202500004082

PATIENT
  Age: 42 Year
  Sex: Female

DRUGS (14)
  1. SOLU-MEDROL [Suspect]
     Active Substance: METHYLPREDNISOLONE SODIUM SUCCINATE
  2. ALBUTEROL SULFATE [Concomitant]
     Active Substance: ALBUTEROL SULFATE
  3. BUPROPION [Concomitant]
     Active Substance: BUPROPION
  4. FLONASE [Concomitant]
     Active Substance: FLUTICASONE PROPIONATE
  5. ASCORBIC ACID\IRON [Concomitant]
     Active Substance: ASCORBIC ACID\IRON
  6. IRBESARTAN [Concomitant]
     Active Substance: IRBESARTAN
  7. METFORMIN [Concomitant]
     Active Substance: METFORMIN HYDROCHLORIDE
  8. MEGESTROL [Concomitant]
     Active Substance: MEGESTROL
  9. MONTELUKAST [Concomitant]
     Active Substance: MONTELUKAST
  10. NALTREXONE [Concomitant]
     Active Substance: NALTREXONE
  11. ONDANSETRON HYDROCHLORIDE [Concomitant]
     Active Substance: ONDANSETRON HYDROCHLORIDE
  12. OZEMPIC [Concomitant]
     Active Substance: SEMAGLUTIDE
  13. CHOLECALCIFEROL [Concomitant]
     Active Substance: CHOLECALCIFEROL
  14. ZYRTEC [Concomitant]
     Active Substance: CETIRIZINE HYDROCHLORIDE

REACTIONS (1)
  - Rash [Unknown]
